FAERS Safety Report 19076926 (Version 8)
Quarter: 2023Q1

REPORT INFORMATION
  Report Type: Spontaneous
  Country: US (occurrence: US)
  Receive Date: 20210331
  Receipt Date: 20230331
  Transmission Date: 20230418
  Serious: No
  Sender: FDA-Public Use
  Company Number: US-THERATECHNOLOGIES INC.-2021-THE-IBA-000089

PATIENT

DRUGS (22)
  1. TROGARZO [Suspect]
     Active Substance: IBALIZUMAB-UIYK
     Indication: HIV infection
     Dosage: 2000 MG, LOADING DOSE
     Route: 042
     Dates: start: 20200729
  2. TROGARZO [Suspect]
     Active Substance: IBALIZUMAB-UIYK
     Indication: Antiretroviral therapy
     Dosage: 800 MG, EVERY 14 DAYS
     Route: 042
     Dates: start: 202102
  3. TROGARZO [Suspect]
     Active Substance: IBALIZUMAB-UIYK
     Dosage: 800 MG, EVERY 14 DAYS
     Route: 042
     Dates: start: 20210408
  4. TROGARZO [Suspect]
     Active Substance: IBALIZUMAB-UIYK
     Dosage: 2000 MG, LOADING DOSE
     Route: 042
     Dates: start: 20221116, end: 20221116
  5. TROGARZO [Suspect]
     Active Substance: IBALIZUMAB-UIYK
     Dosage: 800 MG, EVERY 14 DAYS
     Route: 042
     Dates: start: 20221128
  6. TROGARZO [Suspect]
     Active Substance: IBALIZUMAB-UIYK
     Dosage: 800 MG, EVERY 14 DAYS
     Route: 042
     Dates: start: 20221207
  7. SODIUM CHLORIDE [Concomitant]
     Active Substance: SODIUM CHLORIDE
     Indication: Product used for unknown indication
     Route: 042
  8. DAPSONE [Concomitant]
     Active Substance: DAPSONE
     Indication: Product used for unknown indication
     Dosage: 1 TABLET, QD
     Route: 048
  9. ZYRTEC [Concomitant]
     Active Substance: CETIRIZINE HYDROCHLORIDE
     Indication: Product used for unknown indication
     Dosage: 1 TABLET EVERY BEDTIME
     Route: 048
  10. FLONASE ALLERGY RELIEF [Concomitant]
     Active Substance: FLUTICASONE PROPIONATE
     Indication: Product used for unknown indication
     Dosage: 1-2 SPRAY EVERY DAY IN EACH NOSTRIL AS NEEDED
     Route: 045
  11. INCRUSE ELLIPTA [Concomitant]
     Active Substance: UMECLIDINIUM BROMIDE
     Indication: Product used for unknown indication
     Dosage: 1 PUFF, EVERY DAY AT THE SAME TIME EACH DAY
  12. PROPRANOLOL HYDROCHLORIDE [Concomitant]
     Active Substance: PROPRANOLOL HYDROCHLORIDE
     Indication: Product used for unknown indication
     Dosage: 1 CAPSULE, QD
     Route: 048
  13. HYDROCHLOROTHIAZIDE [Concomitant]
     Active Substance: HYDROCHLOROTHIAZIDE
     Indication: Product used for unknown indication
     Dosage: 1 TABLET, QD
     Route: 048
  14. LOSARTAN POTASSIUM [Concomitant]
     Active Substance: LOSARTAN POTASSIUM
     Indication: Product used for unknown indication
     Dosage: 1 TABLET, QD
     Route: 048
  15. RUKOBIA [Concomitant]
     Active Substance: FOSTEMSAVIR TROMETHAMINE
     Indication: Product used for unknown indication
     Dosage: 1 TABLET, BID
     Route: 048
  16. ATORVASTATIN [Concomitant]
     Active Substance: ATORVASTATIN
     Indication: Product used for unknown indication
     Dosage: 1 DF, QD
     Route: 048
  17. ASPIRIN [Concomitant]
     Active Substance: ASPIRIN
     Indication: Product used for unknown indication
     Dosage: 1 TABLET, QD
     Route: 048
  18. VITAMIN D2 [Concomitant]
     Active Substance: ERGOCALCIFEROL
     Indication: Product used for unknown indication
     Dosage: 1 CAPSULE, WEEKLY
     Route: 048
  19. EPIVIR [Concomitant]
     Active Substance: LAMIVUDINE
     Indication: Product used for unknown indication
     Dosage: 1 DF, QD
     Route: 048
  20. CHLORTHALIDONE [Concomitant]
     Active Substance: CHLORTHALIDONE
     Indication: Product used for unknown indication
     Dosage: 1 DF, QD
     Route: 048
  21. AMLODIPINE [Concomitant]
     Active Substance: AMLODIPINE BESYLATE
     Indication: Product used for unknown indication
     Dosage: 1 DF, QD
     Route: 048
  22. BIKTARVY [Concomitant]
     Active Substance: BICTEGRAVIR SODIUM\EMTRICITABINE\TENOFOVIR ALAFENAMIDE FUMARATE
     Indication: Product used for unknown indication

REACTIONS (5)
  - Blood pressure increased [Recovered/Resolved]
  - Product storage error [Recovered/Resolved with Sequelae]
  - Flushing [Recovered/Resolved]
  - Dizziness [Recovered/Resolved]
  - Incorrect drug administration rate [Recovered/Resolved]

NARRATIVE: CASE EVENT DATE: 20221221
